FAERS Safety Report 5909417-7 (Version None)
Quarter: 2008Q4

REPORT INFORMATION
  Report Type: 
  Country: None (occurrence: None)
  Receive Date: 20081006
  Receipt Date: 20080930
  Transmission Date: 20090506
  Serious: Yes (Hospitalization)
  Sender: FDA-Public Use
  Company Number: US-B.I. PHARMACEUTICALS,INC./RIDGEFIELD-2008-BP-13322BP

PATIENT
  Age: 85 Year
  Sex: Male

DRUGS (5)
  1. FLOMAX [Suspect]
     Indication: BENIGN PROSTATIC HYPERPLASIA
     Dosage: .4MG
     Route: 048
     Dates: start: 20030101
  2. LIPITOR [Concomitant]
     Route: 048
  3. ASPIRIN [Concomitant]
     Route: 048
  4. NORVASC [Concomitant]
  5. LASIX [Concomitant]

REACTIONS (5)
  - CATARACT [None]
  - GALLBLADDER DISORDER [None]
  - LACRIMATION INCREASED [None]
  - PNEUMONIA [None]
  - VISUAL ACUITY REDUCED [None]
